FAERS Safety Report 15510086 (Version 1)
Quarter: 2018Q4

REPORT INFORMATION
  Report Type: Spontaneous
  Country: US (occurrence: US)
  Receive Date: 20181016
  Receipt Date: 20181016
  Transmission Date: 20190205
  Serious: No
  Sender: FDA-Public Use
  Company Number: US-AMGEN-USASP2018050493

PATIENT
  Age: 87 Year
  Sex: Female

DRUGS (12)
  1. CARBOPLATIN. [Concomitant]
     Active Substance: CARBOPLATIN
     Indication: INTESTINAL METASTASIS
  2. DECADRON [Concomitant]
     Active Substance: DEXAMETHASONE
     Dosage: 10 MG, UNK
     Dates: start: 2018
  3. TYLENOL PM [Concomitant]
     Active Substance: ACETAMINOPHEN\DIPHENHYDRAMINE
     Dosage: UNK (AT NIGHT)
  4. TAXOL [Concomitant]
     Active Substance: PACLITAXEL
     Indication: INTESTINAL METASTASIS
  5. TAXOL [Concomitant]
     Active Substance: PACLITAXEL
     Indication: METASTASES TO LUNG
  6. CLARITIN [Concomitant]
     Active Substance: LORATADINE
     Dosage: UNK
  7. CARBOPLATIN. [Concomitant]
     Active Substance: CARBOPLATIN
     Indication: METASTASES TO LUNG
  8. NEULASTA [Suspect]
     Active Substance: PEGFILGRASTIM
     Indication: NEUTROPENIA
     Dosage: UNK
     Route: 058
     Dates: start: 20180409
  9. TAXOL [Concomitant]
     Active Substance: PACLITAXEL
     Indication: OVARIAN CANCER STAGE IV
     Dosage: UNK UNK, CYCLICAL (3 WEEKS ON AND 1 WEEK OFF)
     Dates: start: 2018
  10. TAXOL [Concomitant]
     Active Substance: PACLITAXEL
     Indication: METASTASES TO ABDOMINAL CAVITY
  11. CARBOPLATIN. [Concomitant]
     Active Substance: CARBOPLATIN
     Indication: OVARIAN CANCER STAGE IV
     Dosage: UNK UNK, CYCLICAL (3 WEEKS ON AND 1 WEEK OFF)
     Dates: start: 2018
  12. CARBOPLATIN. [Concomitant]
     Active Substance: CARBOPLATIN
     Indication: METASTASES TO ABDOMINAL CAVITY

REACTIONS (1)
  - Fatigue [Unknown]

NARRATIVE: CASE EVENT DATE: 201804
